FAERS Safety Report 6552934-X (Version None)
Quarter: 2010Q1

REPORT INFORMATION
  Report Type: 
  Country: None (occurrence: None)
  Receive Date: 20100122
  Receipt Date: 20100111
  Transmission Date: 20100710
  Serious: Yes (Hospitalization, Other)
  Sender: FDA-Public Use
  Company Number: CERZ-1001105

PATIENT
  Age: 38 Year
  Sex: Male
  Weight: 60 kg

DRUGS (1)
  1. CEREZYME [Suspect]
     Indication: GAUCHER'S DISEASE
     Dates: start: 20011101, end: 20091022

REACTIONS (4)
  - BONE DENSITY DECREASED [None]
  - FALL [None]
  - LIGAMENT INJURY [None]
  - TIBIA FRACTURE [None]
